FAERS Safety Report 22592141 (Version 1)
Quarter: 2023Q2

REPORT INFORMATION
  Report Type: Spontaneous
  Country: CN (occurrence: CN)
  Receive Date: 20230612
  Receipt Date: 20230612
  Transmission Date: 20230722
  Serious: Yes (Death, Life-Threatening, Hospitalization)
  Sender: FDA-Public Use
  Company Number: CN-STRIDES ARCOLAB LIMITED-2023SP009142

PATIENT
  Age: 9 Year
  Sex: Female
  Weight: 29.5 kg

DRUGS (7)
  1. PROPRANOLOL [Suspect]
     Active Substance: PROPRANOLOL HYDROCHLORIDE
     Indication: Thyrotoxic crisis
     Dosage: 7.5 MILLIGRAM, EVERY 8 HOURS
     Route: 048
     Dates: start: 2021
  2. PROPYLTHIOURACIL [Suspect]
     Active Substance: PROPYLTHIOURACIL
     Indication: Thyrotoxic crisis
     Dosage: 50 MILLIGRAM, EVERY 8 HOURS
     Route: 048
     Dates: start: 2021
  3. HYDROCORTISONE [Suspect]
     Active Substance: HYDROCORTISONE
     Indication: Thyrotoxic crisis
     Dosage: 50 MILLIGRAM, EVERY 8 HOURS
     Route: 065
     Dates: start: 2021
  4. NOREPINEPHRINE [Suspect]
     Active Substance: NOREPINEPHRINE
     Indication: Blood pressure decreased
     Dosage: 0.1 MICROGRAM/KILOGRAM PER MIN - TITRATED THEN THE PUMP SPEED OF NOREPINEPHRINE WAS GRADUALLY INCREA
     Route: 065
     Dates: start: 2021
  5. DOBUTAMINE [Suspect]
     Active Substance: DOBUTAMINE HYDROCHLORIDE
     Indication: Blood pressure decreased
     Dosage: 5 MICROGRAM/KILOGRAM PER 1 MIN, (TITRATION OF 5 MICROGRAM/KG/MIN)
     Route: 065
     Dates: start: 2021
  6. DOPAMINE [Suspect]
     Active Substance: DOPAMINE HYDROCHLORIDE
     Indication: Blood pressure decreased
     Dosage: 5 MICROGRAM/KILOGRAM PER 1 MIN, (TITRATION OF 5 MICROGRAM/KG/MIN)
     Route: 065
     Dates: start: 2021
  7. EPINEPHRINE [Suspect]
     Active Substance: EPINEPHRINE
     Indication: Blood pressure decreased
     Dosage: 0.1 MILLILITRE PER KILOGRAM FOR 11 TIMES
     Route: 042
     Dates: start: 2021

REACTIONS (2)
  - Death [Fatal]
  - Drug ineffective for unapproved indication [Unknown]

NARRATIVE: CASE EVENT DATE: 20210101
